FAERS Safety Report 25549729 (Version 1)
Quarter: 2025Q3

REPORT INFORMATION
  Report Type: Spontaneous
  Country: US (occurrence: US)
  Receive Date: 20250714
  Receipt Date: 20250714
  Transmission Date: 20251021
  Serious: Yes (Death, Life-Threatening, Hospitalization, Other)
  Sender: ASTELLAS
  Company Number: US-ASTELLAS-2025-AER-038537

PATIENT
  Age: 71 Year
  Sex: Female

DRUGS (6)
  1. TACROLIMUS [Interacting]
     Active Substance: TACROLIMUS
     Indication: Renal transplant
     Route: 065
  2. PAXLOVID [Interacting]
     Active Substance: NIRMATRELVIR\RITONAVIR
     Indication: COVID-19
     Route: 065
  3. RIFAMPIN [Interacting]
     Active Substance: RIFAMPIN
     Indication: Drug therapy enhancement
     Route: 065
  4. PHENYTOIN [Interacting]
     Active Substance: PHENYTOIN
     Indication: Drug therapy enhancement
     Route: 065
  5. PREDNISONE [Concomitant]
     Active Substance: PREDNISONE
     Indication: Renal transplant
     Route: 065
  6. MYCOPHENOLIC ACID [Concomitant]
     Active Substance: MYCOPHENOLIC ACID
     Indication: Renal transplant
     Route: 065

REACTIONS (8)
  - Toxicity to various agents [Fatal]
  - Cardiac arrest [Fatal]
  - Coma [Fatal]
  - Hypoxic-ischaemic encephalopathy [Fatal]
  - Sepsis [Unknown]
  - COVID-19 [Unknown]
  - Drug interaction [Unknown]
  - Drug interaction [Unknown]
